FAERS Safety Report 9241184 (Version 1)
Quarter: 2013Q2

REPORT INFORMATION
  Report Type: Spontaneous
  Country: NL (occurrence: US)
  Receive Date: 20130419
  Receipt Date: 20130419
  Transmission Date: 20140414
  Serious: No
  Sender: FDA-Public Use
  Company Number: NL-009507513-1304USA010043

PATIENT
  Age: 2 Year
  Sex: Female

DRUGS (1)
  1. TEMODAR [Suspect]
     Route: 048

REACTIONS (1)
  - Drug administered to patient of inappropriate age [Unknown]
